FAERS Safety Report 25256399 (Version 1)
Quarter: 2025Q2

REPORT INFORMATION
  Report Type: Spontaneous
  Country: FR (occurrence: FR)
  Receive Date: 20250430
  Receipt Date: 20250430
  Transmission Date: 20250717
  Serious: Yes (Life-Threatening)
  Sender: HIKMA
  Company Number: None

PATIENT
  Age: 60 Year
  Sex: Male

DRUGS (2)
  1. CISPLATIN [Suspect]
     Active Substance: CISPLATIN
     Indication: Squamous cell carcinoma
     Dosage: 190 MILLIGRAM, 3W
     Route: 042
     Dates: start: 20250303, end: 20250303
  2. SKENAN [Suspect]
     Active Substance: MORPHINE SULFATE
     Indication: Pain management
     Dosage: 40 MILLIGRAM, Q12H
     Route: 048
     Dates: start: 20250303, end: 20250304

REACTIONS (1)
  - Hypoxia [Recovered/Resolved]

NARRATIVE: CASE EVENT DATE: 20250304
